FAERS Safety Report 7294139-3 (Version None)
Quarter: 2011Q1

REPORT INFORMATION
  Report Type: 
  Country: None (occurrence: None)
  Receive Date: 20110204
  Receipt Date: 20110125
  Transmission Date: 20110831
  Serious: Yes (Other)
  Sender: FDA-Public Use
  Company Number: 026230

PATIENT
  Sex: Female

DRUGS (1)
  1. CIMZIA [Suspect]
     Indication: CROHN'S DISEASE
     Dosage: 200 MG 1X/2 WEEKS SUBCUTANEOUS
     Route: 058
     Dates: start: 20100201, end: 20101229

REACTIONS (9)
  - FATIGUE [None]
  - PERSONALITY CHANGE [None]
  - CHEST PAIN [None]
  - DIZZINESS [None]
  - NEPHROLITHIASIS [None]
  - URTICARIA [None]
  - IRRITABILITY [None]
  - GASTRIC DISORDER [None]
  - PRURITUS [None]
